FAERS Safety Report 8214828 (Version 2)
Quarter: 2012Q4

REPORT INFORMATION
  Report Type: 
  Country: US (occurrence: US)
  Receive Date: 20111030
  Receipt Date: 20121023
  Transmission Date: 20130627
  Serious: No
  Sender: FDA-Public Use
  Company Number: US-AMGEN-USASP2011025496

PATIENT
  Age: 36 Year
  Sex: Male

DRUGS (2)
  1. ENBREL [Suspect]
     Indication: RHEUMATOID ARTHRITIS
     Dosage: 50 mg, qwk
     Dates: start: 201007, end: 2012
  2. ENBREL [Suspect]
     Dosage: UNK, qwk
     Dates: start: 201007, end: 2012

REACTIONS (1)
  - Pigmentation disorder [Not Recovered/Not Resolved]
